FAERS Safety Report 18041837 (Version 1)
Quarter: 2020Q3

REPORT INFORMATION
  Report Type: Spontaneous
  Country: ES (occurrence: ES)
  Receive Date: 20200720
  Receipt Date: 20200720
  Transmission Date: 20201103
  Serious: Yes (Other)
  Sender: FDA-Public Use
  Company Number: ES-TEVA-2020-ES-1801255

PATIENT
  Age: 82 Year
  Sex: Female

DRUGS (4)
  1. PANTOPRAZOL 20 MG 28 COMPRIMIDOS [Concomitant]
  2. SUTRIL 10 MG COMPRIMIDOS, 30 COMPRIMIDOS [Concomitant]
  3. AMOXICILINA/ACIDO CLAVULANICO 500 MG/125 MG COMPRIMIDO [Suspect]
     Active Substance: AMOXICILLIN\CLAVULANATE POTASSIUM
     Indication: ANIMAL BITE
     Dosage: 1 DOSAGE FORMS
     Route: 048
     Dates: start: 20200522, end: 20200612
  4. APROVEL 150 MG COMPRIMIDOS RECUBIERTOS CON PELICULA , 28 COMPRIMIDOS [Concomitant]

REACTIONS (1)
  - Liver function test abnormal [Recovering/Resolving]

NARRATIVE: CASE EVENT DATE: 202006
